FAERS Safety Report 6065058-5 (Version None)
Quarter: 2009Q1

REPORT INFORMATION
  Report Type: 
  Country: None (occurrence: None)
  Receive Date: 20090130
  Receipt Date: 20090121
  Transmission Date: 20090719
  Serious: Yes (Other)
  Sender: FDA-Public Use
  Company Number: 2009US000133

PATIENT
  Age: 19 Year
  Sex: Male

DRUGS (9)
  1. AMBISOME [Suspect]
     Indication: APLASIA
     Dosage: IV NOS
     Route: 042
     Dates: start: 20081020
  2. VANCOMYCIN HYDROCHLORIDE [Suspect]
     Indication: APLASIA
     Dosage: IV NOS
     Route: 042
     Dates: start: 20081111
  3. TIENAM(IMIPENEM, CILASTATIN SODIUM) [Suspect]
     Indication: APLASIA
     Dosage: IV NOS
     Route: 042
     Dates: start: 20081111
  4. CERUBIDINE [Suspect]
     Indication: LYMPHOCYTIC LEUKAEMIA
     Dosage: IV NOS
     Route: 042
     Dates: start: 20081028, end: 20081111
  5. DEPO-MEDROL [Concomitant]
  6. METHOTREXATE [Concomitant]
  7. ENDOXAN (CYCLOPHOSPHAMIDE MONOHYDRATE) [Concomitant]
  8. VINCRISTINE [Concomitant]
  9. CYTARABINE [Concomitant]

REACTIONS (2)
  - DERMATITIS EXFOLIATIVE [None]
  - FACE OEDEMA [None]
